FAERS Safety Report 4475497-1 (Version None)
Quarter: 2004Q4

REPORT INFORMATION
  Report Type: 
  Country: None (occurrence: None)
  Receive Date: 20041015
  Receipt Date: 20041006
  Transmission Date: 20050328
  Serious: Yes (Other)
  Sender: FDA-Public Use
  Company Number: TW-MERCK-0410USA01388

PATIENT
  Age: 11 Year
  Sex: Male

DRUGS (7)
  1. ELSPAR [Suspect]
     Indication: ACUTE LYMPHOCYTIC LEUKAEMIA
     Route: 042
     Dates: start: 20020101, end: 20020101
  2. CYTARABINE [Concomitant]
     Indication: ACUTE LYMPHOCYTIC LEUKAEMIA
     Route: 051
     Dates: start: 20020101, end: 20020101
  3. HYDROCORTISONE [Concomitant]
     Indication: ACUTE LYMPHOCYTIC LEUKAEMIA
     Route: 051
     Dates: start: 20020101, end: 20020101
  4. IDARUBICIN HYDROCHLORIDE [Concomitant]
     Indication: ACUTE LYMPHOCYTIC LEUKAEMIA
     Route: 042
     Dates: start: 20020101, end: 20020101
  5. METHOTREXATE [Concomitant]
     Indication: ACUTE LYMPHOCYTIC LEUKAEMIA
     Route: 051
     Dates: start: 20020101, end: 20020101
  6. PREDNISOLONE [Concomitant]
     Indication: ACUTE LYMPHOCYTIC LEUKAEMIA
     Route: 042
     Dates: start: 20020101, end: 20020101
  7. VINCRISTINE SULFATE [Concomitant]
     Indication: ACUTE LYMPHOCYTIC LEUKAEMIA
     Route: 042
     Dates: start: 20020101, end: 20020101

REACTIONS (9)
  - HAEMATURIA [None]
  - HYDRONEPHROSIS [None]
  - HYDROURETER [None]
  - HYPERCALCIURIA [None]
  - NEUTROPENIA [None]
  - PANCREATITIS [None]
  - PHLEBOTHROMBOSIS [None]
  - URETERIC OBSTRUCTION [None]
  - URETERIC STENOSIS [None]
